FAERS Safety Report 16132119 (Version 1)
Quarter: 2019Q1

REPORT INFORMATION
  Report Type: Spontaneous
  Country: US (occurrence: US)
  Receive Date: 20190329
  Receipt Date: 20190329
  Transmission Date: 20190418
  Serious: No
  Sender: FDA-Public Use
  Company Number: US-AMGEN-USASP2019048972

PATIENT
  Age: 69 Year
  Sex: Female

DRUGS (15)
  1. DOXYCYCLINE. [Concomitant]
     Active Substance: DOXYCYCLINE
     Dosage: 40 MILLIGRAM
  2. METFORMIN HCL [Concomitant]
     Active Substance: METFORMIN HYDROCHLORIDE
     Dosage: 750 MILLIGRAM
  3. BREO ELLIPTA [Concomitant]
     Active Substance: FLUTICASONE FUROATE\VILANTEROL TRIFENATATE
     Dosage: 100-25 MC
  4. LEVOCETIRIZINE [Concomitant]
     Active Substance: LEVOCETIRIZINE
     Dosage: 5 MILLIGRAM
  5. SIMVASTATIN. [Concomitant]
     Active Substance: SIMVASTATIN
     Dosage: 40 MILLIGRAM
  6. PREDNISONE. [Concomitant]
     Active Substance: PREDNISONE
     Dosage: 50 MILLIGRAM
  7. GABAPENTIN. [Concomitant]
     Active Substance: GABAPENTIN
     Dosage: 300 MILLIGRAM
  8. ENBREL [Suspect]
     Active Substance: ETANERCEPT
     Indication: RHEUMATOID ARTHRITIS
     Dosage: UNK
     Route: 065
     Dates: start: 20180102
  9. LOSARTAN POTASSSIUM [Concomitant]
     Dosage: 50 MILLIGRAM
  10. PREMARIN [Concomitant]
     Active Substance: ESTROGENS, CONJUGATED
     Dosage: 0.625 MG/GM
  11. DEXILANT [Concomitant]
     Active Substance: DEXLANSOPRAZOLE
     Dosage: 600 MILLIGRAM
  12. FAMOTIDINE. [Concomitant]
     Active Substance: FAMOTIDINE
     Dosage: 40 MILLIGRAM
  13. LEFLUNOMIDE. [Concomitant]
     Active Substance: LEFLUNOMIDE
     Dosage: 20 MILLIGRAM
  14. MUCINEX [Concomitant]
     Active Substance: GUAIFENESIN
     Dosage: 600 MILLIGRAM
  15. LEVOTHYROXIN [Concomitant]
     Active Substance: LEVOTHYROXINE
     Dosage: 50 MICROGRAM

REACTIONS (9)
  - Pain in extremity [Not Recovered/Not Resolved]
  - Muscle spasms [Not Recovered/Not Resolved]
  - Feeling of body temperature change [Not Recovered/Not Resolved]
  - Fall [Not Recovered/Not Resolved]
  - Sinusitis [Not Recovered/Not Resolved]
  - Sleep disorder due to a general medical condition [Not Recovered/Not Resolved]
  - Decreased appetite [Not Recovered/Not Resolved]
  - Paraesthesia [Not Recovered/Not Resolved]
  - Finger deformity [Not Recovered/Not Resolved]
